FAERS Safety Report 20394958 (Version 1)
Quarter: 2022Q1

REPORT INFORMATION
  Report Type: Report from Study
  Country: US (occurrence: US)
  Receive Date: 20220130
  Receipt Date: 20220130
  Transmission Date: 20220423
  Serious: Yes (Death)
  Sender: FDA-Public Use
  Company Number: US-JAZZ-2021-US-007835

PATIENT
  Sex: Female

DRUGS (1)
  1. LURBINECTEDIN [Suspect]
     Active Substance: LURBINECTEDIN
     Indication: Acute myeloid leukaemia
     Dosage: 4.2 MILLIGRAM
     Route: 042
     Dates: start: 20210316

REACTIONS (1)
  - Off label use [Fatal]
